FAERS Safety Report 6521995-6 (Version None)
Quarter: 2009Q4

REPORT INFORMATION
  Report Type: 
  Country: None (occurrence: None)
  Receive Date: 20091230
  Receipt Date: 20091216
  Transmission Date: 20100525
  Serious: Yes (Other)
  Sender: FDA-Public Use
  Company Number: GB-PFIZER INC-2009311322

PATIENT
  Sex: Female

DRUGS (2)
  1. CHAMPIX [Suspect]
     Indication: SMOKING CESSATION THERAPY
  2. BLACK COHOSH [Interacting]
     Indication: MENOPAUSE
     Dosage: UNK

REACTIONS (2)
  - BLOOD CARBON MONOXIDE INCREASED [None]
  - DRUG INTERACTION [None]
